FAERS Safety Report 4510137-4 (Version None)
Quarter: 2004Q4

REPORT INFORMATION
  Report Type: 
  Country: None (occurrence: None)
  Receive Date: 20041119
  Receipt Date: 20041112
  Transmission Date: 20050328
  Serious: Yes (Death)
  Sender: FDA-Public Use
  Company Number: J081-002-001707

PATIENT
  Age: 82 Year
  Sex: Male

DRUGS (8)
  1. ARICEPT [Suspect]
     Indication: DEMENTIA
     Dosage: SEE IMAGE
     Route: 048
     Dates: start: 20010627, end: 20010711
  2. ARICEPT [Suspect]
     Indication: DEMENTIA
     Dosage: SEE IMAGE
     Route: 048
     Dates: start: 20010730, end: 20011122
  3. NORVASC [Suspect]
     Indication: HYPERTENSION
     Dosage: 10 MG, 2 IN 1 D, ORAL
     Route: 048
     Dates: start: 20010406, end: 20011122
  4. DICLOFENAC SODIUM [Suspect]
     Indication: NASOPHARYNGITIS
     Dosage: 50 MG, 2 IN 1 D, ORAL
     Route: 048
     Dates: start: 20011117
  5. KUREMEZIN (SPHERICAL CARBONACEOUS ABSORBENT) [Suspect]
     Indication: RENAL FAILURE CHRONIC
     Dosage: SEE IMAGE
     Route: 048
     Dates: start: 20010406, end: 20011012
  6. KUREMEZIN (SPHERICAL CARBONACEOUS ABSORBENT) [Suspect]
     Indication: RENAL FAILURE CHRONIC
     Dosage: SEE IMAGE
     Route: 048
     Dates: start: 20011013, end: 20011122
  7. HARNAL (TAMSULOSIN HYDROCHLORIDE) [Suspect]
     Indication: BENIGN PROSTATIC HYPERPLASIA
     Dosage: 0.2 MG, 1 IN 1 D, ORAL
     Route: 048
     Dates: start: 20010406, end: 20011122
  8. ALOSENN (ALOSENN) [Suspect]
     Dosage: 1.5 GM, 1 IN 1 D, ORAL
     Route: 048
     Dates: start: 20010406, end: 20011122

REACTIONS (3)
  - CONDITION AGGRAVATED [None]
  - DEMENTIA [None]
  - GASTROINTESTINAL HAEMORRHAGE [None]
